FAERS Safety Report 4499114-X (Version None)
Quarter: 2004Q4

REPORT INFORMATION
  Report Type: 
  Country: None (occurrence: None)
  Receive Date: 20041110
  Receipt Date: 20041110
  Transmission Date: 20050328
  Serious: Yes (Other)
  Sender: FDA-Public Use
  Company Number: None

PATIENT
  Age: 81 Year
  Sex: Male
  Weight: 64.4108 kg

DRUGS (2)
  1. TRAMADOL [Suspect]
     Indication: ARTHRALGIA
     Dosage: 50 MG PO
     Route: 048
  2. TRAMADOL [Suspect]
     Indication: INSOMNIA
     Dosage: 50 MG PO
     Route: 048

REACTIONS (3)
  - DRUG INEFFECTIVE [None]
  - PHARMACEUTICAL PRODUCT COMPLAINT [None]
  - STOMACH DISCOMFORT [None]
